FAERS Safety Report 5353420-5 (Version None)
Quarter: 2007Q2

REPORT INFORMATION
  Report Type: 
  Country: None (occurrence: None)
  Receive Date: 20070612
  Receipt Date: 20070604
  Transmission Date: 20071010
  Serious: Yes (Hospitalization, Other)
  Sender: FDA-Public Use
  Company Number: PHEH2007US08291

PATIENT
  Sex: Female
  Weight: 90.702 kg

DRUGS (5)
  1. DIOVAN [Suspect]
     Indication: HYPERTENSION
     Dosage: 160 MG, QD
     Dates: start: 20020101
  2. DIOVAN [Suspect]
     Dosage: 160 MG, BID
  3. TENORMIN [Concomitant]
     Dosage: UNK, UNK
  4. ISOSORBIDE DINITRATE [Concomitant]
     Dosage: UNK, UNK
  5. METFORMIN HCL [Concomitant]
     Dosage: UNK, UNK

REACTIONS (4)
  - BLOOD PRESSURE INADEQUATELY CONTROLLED [None]
  - EXTRASYSTOLES [None]
  - HYPERTENSION [None]
  - PNEUMONIA [None]
